FAERS Safety Report 6900647-4 (Version None)
Quarter: 2010Q3

REPORT INFORMATION
  Report Type: 
  Country: None (occurrence: None)
  Receive Date: 20100730
  Receipt Date: 20100721
  Transmission Date: 20110219
  Serious: Yes (Hospitalization)
  Sender: FDA-Public Use
  Company Number: 2010MA001063

PATIENT
  Age: 41 Year
  Sex: Male

DRUGS (2)
  1. DICLOFENAC SODIUM [Suspect]
     Indication: GOUT
     Dosage: 50 MG;
     Dates: start: 20100614, end: 20100623
  2. CLARITIN [Concomitant]

REACTIONS (3)
  - LIP SWELLING [None]
  - PRURITUS GENERALISED [None]
  - SWOLLEN TONGUE [None]
